FAERS Safety Report 9093496 (Version 1)
Quarter: 2013Q1

REPORT INFORMATION
  Report Type: Report from Study
  Country: US (occurrence: US)
  Receive Date: 20130131
  Receipt Date: 20130131
  Transmission Date: 20140127
  Serious: No
  Sender: FDA-Public Use
  Company Number: US-ABBOTT-12P-163-0949427-00

PATIENT
  Age: 63 Year
  Sex: Female

DRUGS (20)
  1. HUMIRA 40 MG/0.8 ML PEN [Suspect]
     Indication: SARCOIDOSIS
  2. HUMIRA 40 MG/0.8 ML PEN [Suspect]
     Dates: start: 201204
  3. CITALOPRAM [Suspect]
     Indication: DEPRESSION
  4. CITALOPRAM [Suspect]
     Dosage: 20 MG 1 TAB DAILY
     Dates: start: 20120616
  5. TYLENOL W/CODEINE [Suspect]
     Indication: PRODUCT USED FOR UNKNOWN INDICATION
  6. PREDNISONE [Concomitant]
     Indication: PRODUCT USED FOR UNKNOWN INDICATION
  7. RANITIDINE [Concomitant]
     Indication: ILL-DEFINED DISORDER
  8. ASPIRIN [Concomitant]
     Indication: PRODUCT USED FOR UNKNOWN INDICATION
     Dosage: 81MG DAILY
  9. METHOTREXATE [Concomitant]
     Indication: PRODUCT USED FOR UNKNOWN INDICATION
     Dosage: 2.5MG TABS -8 TABS WEEKLY
  10. NAPROXEN [Concomitant]
     Indication: PRODUCT USED FOR UNKNOWN INDICATION
  11. FOLIC ACID [Concomitant]
     Indication: PRODUCT USED FOR UNKNOWN INDICATION
  12. SIMVASTATIN [Concomitant]
     Indication: BLOOD CHOLESTEROL INCREASED
     Dosage: 10MG AT NIGHT
  13. TYLENOL [Concomitant]
     Indication: PAIN
  14. CALCIUM [Concomitant]
     Indication: PRODUCT USED FOR UNKNOWN INDICATION
  15. MAGNESIUM [Concomitant]
     Indication: PRODUCT USED FOR UNKNOWN INDICATION
  16. ZINC [Concomitant]
     Indication: PRODUCT USED FOR UNKNOWN INDICATION
  17. NITROSTAT [Concomitant]
     Indication: CHEST PAIN
     Route: 060
  18. AMLODIPINE [Concomitant]
     Indication: PRODUCT USED FOR UNKNOWN INDICATION
  19. HYDROCHLOROTHIAZIDE [Concomitant]
     Indication: PRODUCT USED FOR UNKNOWN INDICATION
     Dosage: 25 MG 1 TABLET DAILY
  20. VITAMIN D3 [Concomitant]
     Indication: PRODUCT USED FOR UNKNOWN INDICATION

REACTIONS (6)
  - Hypotension [Recovered/Resolved]
  - Arthralgia [Not Recovered/Not Resolved]
  - Depression [Not Recovered/Not Resolved]
  - Memory impairment [Unknown]
  - Crying [Unknown]
  - Dysstasia [Unknown]
